FAERS Safety Report 7058737-4 (Version None)
Quarter: 2010Q4

REPORT INFORMATION
  Report Type: 
  Country: None (occurrence: None)
  Receive Date: 20101022
  Receipt Date: 20101014
  Transmission Date: 20110411
  Serious: Yes (Hospitalization)
  Sender: FDA-Public Use
  Company Number: JP-ABBOTT-10P-087-0641596-00

PATIENT
  Sex: Female
  Weight: 48.9 kg

DRUGS (5)
  1. HUMIRA [Suspect]
     Indication: COLITIS ULCERATIVE
     Route: 058
     Dates: start: 20090409, end: 20090910
  2. HUMIRA [Suspect]
     Route: 058
     Dates: start: 20090924, end: 20100422
  3. SALAZOPYRIN [Concomitant]
     Indication: COLITIS ULCERATIVE
     Route: 048
     Dates: start: 20080618
  4. CEREKINON [Concomitant]
     Indication: COLITIS ULCERATIVE
     Route: 048
     Dates: start: 20080618
  5. LAC B [Concomitant]
     Indication: COLITIS ULCERATIVE
     Route: 048
     Dates: start: 20080520

REACTIONS (1)
  - COLITIS ULCERATIVE [None]
